FAERS Safety Report 8793252 (Version 3)
Quarter: 2012Q4

REPORT INFORMATION
  Report Type: 
  Country: US (occurrence: US)
  Receive Date: 20120918
  Receipt Date: 20121024
  Transmission Date: 20130627
  Serious: Yes (Death, Hospitalization)
  Sender: FDA-Public Use
  Company Number: US-B.I. PHARMACEUTICALS,INC./RIDGEFIELD-2012-BP-22833BP

PATIENT
  Age: 43 Year
  Sex: Male

DRUGS (5)
  1. PRADAXA [Suspect]
     Indication: ATRIAL FIBRILLATION
     Dosage: 300 mg
     Route: 048
     Dates: start: 201107, end: 201209
  2. ADVAIR [Concomitant]
  3. ALDACTONE [Concomitant]
  4. ALTACE [Concomitant]
  5. COREG [Concomitant]

REACTIONS (1)
  - Embolic stroke [Fatal]
